FAERS Safety Report 25760354 (Version 1)
Quarter: 2025Q3

REPORT INFORMATION
  Report Type: Spontaneous
  Country: US (occurrence: US)
  Receive Date: 20250904
  Receipt Date: 20250904
  Transmission Date: 20251021
  Serious: No
  Sender: SANOFI AVENTIS
  Company Number: US-SA-2025SA262883

PATIENT
  Age: 47 Year
  Sex: Female

DRUGS (8)
  1. KEVZARA [Suspect]
     Active Substance: SARILUMAB
     Indication: Rheumatoid arthritis
     Dosage: 200 MG, QOW
     Route: 058
     Dates: start: 20250711
  2. ASPIRIN [Concomitant]
     Active Substance: ASPIRIN
  3. BOTOX [Concomitant]
     Active Substance: ONABOTULINUMTOXINA
  4. LEVOTHYROXINE SODIUM [Concomitant]
     Active Substance: LEVOTHYROXINE SODIUM
  5. NEBIVOLOL [Concomitant]
     Active Substance: NEBIVOLOL
  6. QULIPTA [Concomitant]
     Active Substance: ATOGEPANT
  7. RANOLAZINE [Concomitant]
     Active Substance: RANOLAZINE
  8. UBRELVY [Concomitant]
     Active Substance: UBROGEPANT

REACTIONS (4)
  - Pain [Unknown]
  - Drug ineffective [Unknown]
  - Fatigue [Unknown]
  - Headache [Unknown]

NARRATIVE: CASE EVENT DATE: 20250101
